FAERS Safety Report 4468361-5 (Version None)
Quarter: 2004Q4

REPORT INFORMATION
  Report Type: 
  Country: None (occurrence: None)
  Receive Date: 20041007
  Receipt Date: 20031211
  Transmission Date: 20050328
  Serious: Yes (Other)
  Sender: FDA-Public Use
  Company Number: PHEH2003US11752

PATIENT
  Age: 18 Year
  Sex: Female

DRUGS (1)
  1. FORADIL [Suspect]
     Indication: INFECTION
     Dates: start: 20031206

REACTIONS (3)
  - CONVULSION [None]
  - HEADACHE [None]
  - TREMOR [None]
